FAERS Safety Report 8886677 (Version 3)
Quarter: 2013Q1

REPORT INFORMATION
  Report Type: Spontaneous
  Country: CA (occurrence: CA)
  Receive Date: 20121105
  Receipt Date: 20130107
  Transmission Date: 20140127
  Serious: Yes (Life-Threatening, Hospitalization)
  Sender: FDA-Public Use
  Company Number: PHHY2012CA099608

PATIENT
  Sex: Female

DRUGS (9)
  1. TASIGNA [Suspect]
     Indication: CHRONIC MYELOID LEUKAEMIA
     Dosage: 400 MG, BID
     Route: 048
     Dates: start: 20111004
  2. NORVASC [Concomitant]
  3. DIOVAN [Concomitant]
  4. LANTUS [Concomitant]
  5. GLUCOPHAGE [Concomitant]
  6. DIAMICRON [Concomitant]
  7. ASA [Concomitant]
  8. VITAMIN D [Concomitant]
  9. CALCIUM [Concomitant]

REACTIONS (1)
  - Myocardial infarction [Recovered/Resolved]
